FAERS Safety Report 12841528 (Version 2)
Quarter: 2016Q4

REPORT INFORMATION
  Report Type: Report from Study
  Country: CA (occurrence: CA)
  Receive Date: 20161012
  Receipt Date: 20161207
  Transmission Date: 20170207
  Serious: Yes (Hospitalization, Other)
  Sender: FDA-Public Use
  Company Number: CA-JNJFOC-20161004892

PATIENT
  Sex: Female
  Weight: 36 kg

DRUGS (3)
  1. REMICADE [Suspect]
     Active Substance: INFLIXIMAB
     Indication: CROHN^S DISEASE
     Route: 042
     Dates: start: 20150603
  2. REMICADE [Suspect]
     Active Substance: INFLIXIMAB
     Indication: CROHN^S DISEASE
     Dosage: DOSE NUMBER 10
     Route: 042
     Dates: start: 20160809
  3. IMURAN [Concomitant]
     Active Substance: AZATHIOPRINE
     Route: 048

REACTIONS (8)
  - Fistula [Recovered/Resolved]
  - Fistula discharge [Recovered/Resolved]
  - Abdominal pain [Recovered/Resolved]
  - Intestinal resection [Recovered/Resolved]
  - Ileostomy [Recovered/Resolved]
  - Hospitalisation [Unknown]
  - Cholelithiasis [Unknown]
  - Drug ineffective [Unknown]

NARRATIVE: CASE EVENT DATE: 2015
